FAERS Safety Report 6851146-X (Version None)
Quarter: 2010Q3

REPORT INFORMATION
  Report Type: 
  Country: None (occurrence: None)
  Receive Date: 20100716
  Receipt Date: 20080218
  Transmission Date: 20110219
  Serious: No
  Sender: FDA-Public Use
  Company Number: US-PFIZER INC-2007090934

PATIENT
  Sex: Female
  Weight: 59.09 kg

DRUGS (8)
  1. CHANTIX [Suspect]
     Indication: SMOKING CESSATION THERAPY
     Route: 048
     Dates: start: 20071022
  2. DRUG, UNSPECIFIED [Concomitant]
  3. MULTI-VITAMINS [Concomitant]
  4. ANTIOXIDANTS [Concomitant]
  5. FISH OIL [Concomitant]
  6. LOVAZA [Concomitant]
  7. DRUG, UNSPECIFIED [Concomitant]
     Route: 055
  8. NABUMETONE [Concomitant]

REACTIONS (2)
  - PRURITUS [None]
  - RASH [None]
